FAERS Safety Report 19115319 (Version 2)
Quarter: 2021Q2

REPORT INFORMATION
  Report Type: Report from Study
  Country: US (occurrence: US)
  Receive Date: 20210409
  Receipt Date: 20210428
  Transmission Date: 20210717
  Serious: Yes (Death)
  Sender: FDA-Public Use
  Company Number: US-PFIZER INC-2021376268

PATIENT
  Age: 47 Year
  Sex: Male

DRUGS (1)
  1. MINOXIDIL. [Suspect]
     Active Substance: MINOXIDIL
     Indication: HYPERTENSION
     Dosage: 40 MG, DAILY
     Route: 048

REACTIONS (1)
  - Cardiac disorder [Fatal]
